FAERS Safety Report 9334333 (Version 1)
Quarter: 2013Q2

REPORT INFORMATION
  Report Type: Spontaneous
  Country: US (occurrence: US)
  Receive Date: 20130606
  Receipt Date: 20130606
  Transmission Date: 20140414
  Serious: No
  Sender: FDA-Public Use
  Company Number: US-AMGEN-USASP2013020186

PATIENT
  Age: 55 Year
  Sex: Female
  Weight: 74.83 kg

DRUGS (6)
  1. PROLIA [Suspect]
     Indication: OSTEOPOROSIS POSTMENOPAUSAL
     Dosage: UNK
     Dates: start: 20130313
  2. VITAMIN D                          /00107901/ [Concomitant]
     Dosage: 50000 IU, QD
     Route: 048
  3. LASIX                              /00032601/ [Concomitant]
  4. IRON [Concomitant]
  5. MULTIVITAMIN                       /00097801/ [Concomitant]
  6. VITAMIN B12                        /00056201/ [Concomitant]
     Dosage: 1000 MUG, Q2WK
     Route: 058

REACTIONS (5)
  - Joint swelling [Recovered/Resolved]
  - Arthralgia [Recovering/Resolving]
  - Burning sensation [Unknown]
  - Gait disturbance [Unknown]
  - Erythema [Recovering/Resolving]
